FAERS Safety Report 7057285-5 (Version None)
Quarter: 2010Q4

REPORT INFORMATION
  Report Type: 
  Country: None (occurrence: None)
  Receive Date: 20101022
  Receipt Date: 20101018
  Transmission Date: 20110411
  Serious: Yes (Hospitalization)
  Sender: FDA-Public Use
  Company Number: DE-SANOFI-AVENTIS-2010SA062845

PATIENT
  Age: 71 Year
  Sex: Female

DRUGS (11)
  1. DOCETAXEL [Suspect]
     Route: 041
     Dates: start: 20100706, end: 20100706
  2. DOCETAXEL [Suspect]
     Route: 041
     Dates: start: 20100817, end: 20100817
  3. OXALIPLATIN [Suspect]
     Route: 041
     Dates: start: 20100706, end: 20100706
  4. OXALIPLATIN [Suspect]
     Route: 041
     Dates: start: 20100817, end: 20100817
  5. FLUOROURACIL [Suspect]
     Route: 041
     Dates: start: 20100706, end: 20100706
  6. FLUOROURACIL [Suspect]
     Route: 041
     Dates: start: 20100817, end: 20100817
  7. FOLINIC ACID [Suspect]
     Route: 041
     Dates: start: 20100706, end: 20100706
  8. FOLINIC ACID [Suspect]
     Route: 041
     Dates: start: 20100817, end: 20100817
  9. PANTOPRAZOLE SODIUM [Concomitant]
     Indication: PROPHYLAXIS
     Route: 048
  10. AMITRIPTYLINE HYDROCHLORIDE [Concomitant]
     Indication: SLEEP DISORDER
     Route: 048
     Dates: start: 20100819, end: 20100825
  11. VALSARTAN [Concomitant]
     Route: 048

REACTIONS (3)
  - CHEST PAIN [None]
  - DYSPNOEA [None]
  - SUPRAVENTRICULAR TACHYCARDIA [None]
